FAERS Safety Report 7680861 (Version 2)
Quarter: 2013Q4

REPORT INFORMATION
  Report Type: Report from Study
  Country: US (occurrence: US)
  Receive Date: 20101123
  Receipt Date: 20131011
  Transmission Date: 20140711
  Serious: Yes (Hospitalization)
  Sender: FDA-Public Use
  Company Number: US-ALLERGAN-1015052US

PATIENT
  Age: 60 Year
  Sex: Male

DRUGS (2)
  1. BOTULINUM TOXIN TYPE A - GENERAL (9060X) [Suspect]
     Indication: TORTICOLLIS
     Dosage: UNK
     Dates: start: 20101005, end: 20101005
  2. HYDREA [Suspect]
     Indication: PRODUCT USED FOR UNKNOWN INDICATION

REACTIONS (2)
  - Loss of consciousness [Recovered/Resolved]
  - Polycythaemia [Recovered/Resolved]
